FAERS Safety Report 23347245 (Version 1)
Quarter: 2023Q4

REPORT INFORMATION
  Report Type: Spontaneous
  Country: US (occurrence: None)
  Receive Date: 20231227
  Receipt Date: 20231227
  Transmission Date: 20240109
  Serious: Yes (Hospitalization)
  Sender: FDA-Public Use
  Company Number: None

PATIENT
  Age: 73 Year
  Sex: Female

DRUGS (1)
  1. TYMLOS [Suspect]
     Active Substance: ABALOPARATIDE
     Indication: Osteoporosis
     Dosage: 80MCG QD SUBCUTANEOUS?
     Route: 058

REACTIONS (6)
  - Back injury [None]
  - Neuralgia [None]
  - Arthralgia [None]
  - Pain in extremity [None]
  - Spinal fracture [None]
  - Alopecia [None]
